FAERS Safety Report 22366831 (Version 1)
Quarter: 2023Q2

REPORT INFORMATION
  Report Type: Spontaneous
  Country: US (occurrence: None)
  Receive Date: 20230524
  Receipt Date: 20230524
  Transmission Date: 20230722
  Serious: Yes (Other)
  Sender: FDA-Public Use
  Company Number: None

PATIENT
  Age: 67 Year
  Sex: Female
  Weight: 87.75 kg

DRUGS (4)
  1. DORZOLAMIDE HYDROCHLORIDE AND TIMOLOL MALEATE [Suspect]
     Active Substance: DORZOLAMIDE HYDROCHLORIDE\TIMOLOL MALEATE
     Indication: Glaucoma
     Dosage: OTHER QUANTITY : 1 DROP(S);?FREQUENCY : TWICE A DAY;?
     Route: 047
  2. Womens multivitamin [Concomitant]
  3. CALCIUM [Concomitant]
     Active Substance: CALCIUM
  4. LUTEIN [Concomitant]
     Active Substance: LUTEIN

REACTIONS (3)
  - Product packaging difficult to open [None]
  - Product substitution issue [None]
  - Product design issue [None]

NARRATIVE: CASE EVENT DATE: 20230521
